FAERS Safety Report 20303559 (Version 1)
Quarter: 2022Q1

REPORT INFORMATION
  Report Type: Spontaneous
  Country: JP (occurrence: JP)
  Receive Date: 20220106
  Receipt Date: 20220106
  Transmission Date: 20220423
  Serious: Yes (Other)
  Sender: FDA-Public Use
  Company Number: JP-NOVARTISPH-NVSJ2022JP000478

PATIENT
  Age: 30 Year
  Sex: Male

DRUGS (1)
  1. HYDROCHLOROTHIAZIDE\LOSARTAN POTASSIUM [Suspect]
     Active Substance: HYDROCHLOROTHIAZIDE\LOSARTAN POTASSIUM
     Indication: Product used for unknown indication
     Dosage: 1DF: LOSARTAN POTASSIUM, HYDROCHLOROTHIAZIDE 100MG/12.5MG
     Route: 048

REACTIONS (1)
  - Blood pressure increased [Unknown]

NARRATIVE: CASE EVENT DATE: 20211101
